FAERS Safety Report 16482676 (Version 3)
Quarter: 2019Q3

REPORT INFORMATION
  Report Type: Report from Study
  Country: IT (occurrence: IT)
  Receive Date: 20190627
  Receipt Date: 20190711
  Transmission Date: 20191004
  Serious: Yes (Death)
  Sender: FDA-Public Use
  Company Number: IT-ACCORD-135261

PATIENT
  Age: 58 Year
  Sex: Male
  Weight: 82 kg

DRUGS (2)
  1. CAPECITABINE ACCORD [Suspect]
     Active Substance: CAPECITABINE
     Indication: RECTOSIGMOID CANCER STAGE III
     Dosage: STRENGTH: 500 MG
     Route: 048
     Dates: start: 20190523, end: 20190528
  2. OXALIPLATIN SUN [Concomitant]
     Active Substance: OXALIPLATIN
     Indication: RECTOSIGMOID CANCER STAGE III
     Dosage: STRENGTH: 5 MG/ML
     Route: 042
     Dates: start: 20190522, end: 20190522

REACTIONS (8)
  - Neutropenia [Fatal]
  - Pyrexia [Fatal]
  - Vomiting [Fatal]
  - Leukopenia [Fatal]
  - Thrombocytopenia [Fatal]
  - Nausea [Fatal]
  - Mucosal inflammation [Fatal]
  - Diarrhoea [Fatal]

NARRATIVE: CASE EVENT DATE: 20190529
